FAERS Safety Report 8393784-1 (Version None)
Quarter: 2012Q2

REPORT INFORMATION
  Report Type: 
  Country: None (occurrence: None)
  Receive Date: 20120530
  Receipt Date: 20120521
  Transmission Date: 20120825
  Serious: No
  Sender: FDA-Public Use
  Company Number: US-BIOGENIDEC-2012BI017994

PATIENT
  Age: 59 Year
  Sex: Female

DRUGS (1)
  1. AVONEX [Suspect]
     Indication: MULTIPLE SCLEROSIS
     Route: 030
     Dates: start: 20111003

REACTIONS (10)
  - PAIN [None]
  - PAIN IN EXTREMITY [None]
  - PARAESTHESIA [None]
  - FALL [None]
  - MUSCULAR WEAKNESS [None]
  - FEELING OF BODY TEMPERATURE CHANGE [None]
  - BACK PAIN [None]
  - DYSKINESIA [None]
  - BALANCE DISORDER [None]
  - HYPOAESTHESIA [None]
